FAERS Safety Report 8375566-X (Version None)
Quarter: 2012Q2

REPORT INFORMATION
  Report Type: 
  Country: None (occurrence: None)
  Receive Date: 20120522
  Receipt Date: 20120511
  Transmission Date: 20120825
  Serious: Yes (Hospitalization)
  Sender: FDA-Public Use
  Company Number: JP-VERTEX PHARMACEUTICALS INC.-AE-2012-007248

PATIENT
  Age: 71 Year
  Sex: Female

DRUGS (6)
  1. PEG-INTRON [Concomitant]
     Route: 051
     Dates: start: 20120207
  2. REBAMIPIDE [Concomitant]
     Route: 048
     Dates: start: 20120207
  3. TELAVIC (TELAPREVIR) [Suspect]
     Indication: HEPATITIS C
     Route: 048
     Dates: start: 20120207, end: 20120430
  4. RIBAVIRIN [Concomitant]
     Route: 048
     Dates: start: 20120207, end: 20120227
  5. RIBAVIRIN [Concomitant]
     Route: 048
     Dates: start: 20120228
  6. LORFENAMIN [Concomitant]
     Route: 048
     Dates: start: 20120207

REACTIONS (2)
  - MALAISE [None]
  - RASH [None]
